FAERS Safety Report 4427317-9 (Version None)
Quarter: 2004Q3

REPORT INFORMATION
  Report Type: 
  Country: None (occurrence: None)
  Receive Date: 20040813
  Receipt Date: 20040813
  Transmission Date: 20050211
  Serious: Yes (Hospitalization)
  Sender: FDA-Public Use
  Company Number: None

PATIENT
  Age: 34 Year
  Sex: Female
  Weight: 50.9 kg

DRUGS (5)
  1. THIOTEPA [Suspect]
     Indication: CENTRAL NERVOUS SYSTEM NEOPLASM
     Dosage: 2.0 MG/KG ONCE IV
     Route: 042
     Dates: start: 20040722, end: 20040722
  2. THIOTEPA [Suspect]
     Indication: LYMPHOMA
     Dosage: 2.0 MG/KG ONCE IV
     Route: 042
     Dates: start: 20040722, end: 20040722
  3. METHOTREXATE [Concomitant]
  4. DECADRON [Concomitant]
  5. DILANTIN [Concomitant]

REACTIONS (2)
  - CEREBROSPINAL FLUID LEAKAGE [None]
  - POST PROCEDURAL COMPLICATION [None]
